FAERS Safety Report 8377016-6 (Version None)
Quarter: 2012Q2

REPORT INFORMATION
  Report Type: 
  Country: None (occurrence: None)
  Receive Date: 20120522
  Receipt Date: 20120514
  Transmission Date: 20120825
  Serious: Yes (Hospitalization)
  Sender: FDA-Public Use
  Company Number: NL-TEVA-338106ISR

PATIENT
  Age: 44 Year
  Sex: Male

DRUGS (7)
  1. QUETIAPINE [Suspect]
     Indication: ANXIETY
     Dosage: FOR 1ST + 2ND CISPLATIN COURSE
     Route: 065
  2. APREPITANT [Interacting]
     Dosage: 80 MILLIGRAM; 3-DAY REGIMEN (125MG, 80MG, 80MG)
     Route: 065
  3. CISPLATIN [Concomitant]
     Dosage: 100 MG/M2 EVERY 3WKS
     Route: 065
  4. DEXAMETHASONE [Concomitant]
     Indication: PROPHYLAXIS OF NAUSEA AND VOMITING
     Route: 065
  5. ONDANSETRON [Concomitant]
     Indication: PROPHYLAXIS OF NAUSEA AND VOMITING
     Route: 065
  6. APREPITANT [Interacting]
     Indication: PROPHYLAXIS OF NAUSEA AND VOMITING
     Dosage: 125 MILLIGRAM; 3-DAY REGIMEN (125MG, 80MG, 80MG)
     Route: 065
  7. CITALOPRAM HYDROBROMIDE [Concomitant]
     Indication: DEPRESSION
     Route: 065

REACTIONS (5)
  - DRUG INTERACTION [None]
  - SOMNOLENCE [None]
  - DRUG LEVEL INCREASED [None]
  - DEHYDRATION [None]
  - RENAL IMPAIRMENT [None]
